FAERS Safety Report 15393844 (Version 1)
Quarter: 2018Q3

REPORT INFORMATION
  Report Type: Spontaneous
  Country: JP (occurrence: JP)
  Receive Date: 20180917
  Receipt Date: 20180917
  Transmission Date: 20181010
  Serious: Yes (Hospitalization)
  Sender: FDA-Public Use
  Company Number: JP-ALLERGAN-1845034US

PATIENT

DRUGS (1)
  1. RISEDRONATE SODIUM ? BP [Suspect]
     Active Substance: RISEDRONATE SODIUM
     Indication: PRODUCT USED FOR UNKNOWN INDICATION
     Dosage: 75 MG,  ON THE FIRST OF EACH MONTH
     Route: 048

REACTIONS (3)
  - Inappropriate schedule of drug administration [Unknown]
  - Hospitalisation [Unknown]
  - Drug dose omission [Unknown]
